FAERS Safety Report 7609871-9 (Version None)
Quarter: 2011Q3

REPORT INFORMATION
  Report Type: 
  Country: None (occurrence: None)
  Receive Date: 20110714
  Receipt Date: 20110630
  Transmission Date: 20111222
  Serious: Yes (Hospitalization)
  Sender: FDA-Public Use
  Company Number: CA-CELGENEUS-028-21880-11062854

PATIENT
  Sex: Male
  Weight: 88 kg

DRUGS (6)
  1. REVLIMID [Suspect]
     Route: 048
     Dates: start: 20110627
  2. ASPIRIN [Concomitant]
     Dosage: 81 MILLIGRAM
     Route: 048
  3. DEXAMETHASONE [Suspect]
     Dosage: 12 MILLIGRAM
     Route: 048
  4. SEPTRA DS [Concomitant]
     Dosage: 1 TABLET
     Route: 048
  5. POLYGAM S/D [Concomitant]
     Route: 051
     Dates: start: 20110617, end: 20110617
  6. REVLIMID [Suspect]
     Dosage: 25 MILLIGRAM
     Route: 048
     Dates: start: 20100503, end: 20110622

REACTIONS (2)
  - VENTRICULAR TACHYCARDIA [None]
  - ACCELERATED IDIOVENTRICULAR RHYTHM [None]
